FAERS Safety Report 15760229 (Version 2)
Quarter: 2019Q1

REPORT INFORMATION
  Report Type: Spontaneous
  Country: SI (occurrence: SI)
  Receive Date: 20181226
  Receipt Date: 20190102
  Transmission Date: 20190417
  Serious: Yes (Other)
  Sender: FDA-Public Use
  Company Number: SI-PFIZER INC-2018524100

PATIENT
  Age: 25 Year
  Sex: Male

DRUGS (3)
  1. PERINDOPRIL [Suspect]
     Active Substance: PERINDOPRIL
     Dosage: 5 MG, UNK
     Route: 065
  2. EPLERENONE. [Suspect]
     Active Substance: EPLERENONE
     Dosage: 25 MG, UNK
     Route: 065
  3. BISOPROLOL [Suspect]
     Active Substance: BISOPROLOL
     Dosage: 5 MG, 2X/DAY
     Route: 065

REACTIONS (2)
  - Dyspnoea exertional [Unknown]
  - Ejection fraction decreased [Not Recovered/Not Resolved]
